FAERS Safety Report 6108481-2 (Version None)
Quarter: 2009Q1

REPORT INFORMATION
  Report Type: 
  Country: None (occurrence: None)
  Receive Date: 20090309
  Receipt Date: 20090304
  Transmission Date: 20090719
  Serious: No
  Sender: FDA-Public Use
  Company Number: US-B.I. PHARMACEUTICALS,INC./RIDGEFIELD-2009-BP-02719BP

PATIENT
  Sex: Male

DRUGS (2)
  1. SPIRIVA [Suspect]
     Indication: ASTHMA
     Dosage: 18MCG
     Route: 055
     Dates: start: 20080101
  2. SYMBICORT [Concomitant]
     Indication: ASTHMA
     Dosage: 2PUF
     Route: 055
     Dates: start: 20080101

REACTIONS (2)
  - NASAL CONGESTION [None]
  - RESPIRATION ABNORMAL [None]
